FAERS Safety Report 14053915 (Version 3)
Quarter: 2018Q1

REPORT INFORMATION
  Report Type: Spontaneous
  Country: FR (occurrence: FR)
  Receive Date: 20171006
  Receipt Date: 20180326
  Transmission Date: 20180508
  Serious: Yes (Hospitalization, Congenital Anomaly, Other)
  Sender: FDA-Public Use
  Company Number: FR-ABBVIE-17P-056-2121129-00

PATIENT
  Sex: Male
  Weight: 3.4 kg

DRUGS (1)
  1. DEPAKINE CHRONO [Suspect]
     Active Substance: VALPROATE SODIUM
     Indication: MATERNAL EXPOSURE TIMING UNSPECIFIED
     Route: 064

REACTIONS (35)
  - Osteochondritis [Unknown]
  - Beta haemolytic streptococcal infection [Unknown]
  - Respiratory distress [Recovered/Resolved]
  - Epilepsy [Unknown]
  - Oral infection [Unknown]
  - Developmental delay [Unknown]
  - Ear infection [Unknown]
  - Jaundice [Unknown]
  - Foetal exposure during pregnancy [Unknown]
  - Epilepsy [Not Recovered/Not Resolved]
  - Motor dysfunction [Unknown]
  - Dysmorphism [Unknown]
  - Arachnodactyly [Unknown]
  - Anaemia [Unknown]
  - Emphysema [Unknown]
  - Oral disorder [Unknown]
  - Regurgitation [Unknown]
  - Myopia [Unknown]
  - Learning disorder [Unknown]
  - Bronchitis [Unknown]
  - Cardiac disorder [Unknown]
  - Phimosis [Unknown]
  - Ear infection [Unknown]
  - Scoliosis [Not Recovered/Not Resolved]
  - Pulmonary arterial hypertension [Unknown]
  - Prepuce redundant [Unknown]
  - Hypotonia [Unknown]
  - Congenital tongue anomaly [Unknown]
  - Ear infection [Unknown]
  - Visual impairment [Unknown]
  - Inguinal hernia [Unknown]
  - Joint dislocation [Unknown]
  - Osteoarthritis [Unknown]
  - Lung disorder [Unknown]
  - Vomiting [Unknown]

NARRATIVE: CASE EVENT DATE: 1993
